FAERS Safety Report 5408626-3 (Version None)
Quarter: 2007Q3

REPORT INFORMATION
  Report Type: 
  Country: None (occurrence: None)
  Receive Date: 20070808
  Receipt Date: 20070806
  Transmission Date: 20080115
  Serious: Yes (Life-Threatening, Hospitalization, Other)
  Sender: FDA-Public Use
  Company Number: US-PFIZER INC-2005100252

PATIENT
  Sex: Female

DRUGS (4)
  1. CELEBREX [Suspect]
     Indication: PAIN
     Route: 048
  2. DIOVAN [Concomitant]
  3. ULTRAM [Concomitant]
  4. ACETYLSALICYLIC ACID SRT [Concomitant]

REACTIONS (2)
  - ACUTE MYOCARDIAL INFARCTION [None]
  - CARDIOVASCULAR DISORDER [None]
